FAERS Safety Report 19547038 (Version 3)
Quarter: 2021Q3

REPORT INFORMATION
  Report Type: Spontaneous
  Country: JP (occurrence: JP)
  Receive Date: 20210714
  Receipt Date: 20210830
  Transmission Date: 20211014
  Serious: Yes (Other)
  Sender: FDA-Public Use
  Company Number: NVSJ2021JP010504

PATIENT
  Age: 73 Year
  Sex: Male

DRUGS (1)
  1. AFINITOR [Suspect]
     Active Substance: EVEROLIMUS
     Indication: NEUROENDOCRINE TUMOUR OF THE LUNG
     Dosage: 10 MG
     Route: 048
     Dates: start: 20210701, end: 20210705

REACTIONS (2)
  - Rash [Recovered/Resolved]
  - Erythema multiforme [Unknown]

NARRATIVE: CASE EVENT DATE: 20210705
